FAERS Safety Report 4774526-5 (Version None)
Quarter: 2005Q3

REPORT INFORMATION
  Report Type: 
  Country: None (occurrence: None)
  Receive Date: 20050919
  Receipt Date: 20050919
  Transmission Date: 20060218
  Serious: Yes (Other)
  Sender: FDA-Public Use
  Company Number: None

PATIENT
  Age: 41 Year
  Sex: Female
  Weight: 70.3075 kg

DRUGS (7)
  1. LEVAQUIN [Suspect]
     Indication: SINUSITIS
     Dosage: 500 MG ONCE DAILY P.O.
     Route: 048
     Dates: start: 20050608, end: 20050613
  2. SINGULAIR [Concomitant]
  3. ADVAIR DISKUS 100/50 [Concomitant]
  4. RHINOCORT [Concomitant]
  5. THYROID TAB [Concomitant]
  6. PSEUDOEPHEDRINE HCL [Concomitant]
  7. CLARITIN [Concomitant]

REACTIONS (10)
  - ARTHRALGIA [None]
  - BURNING SENSATION [None]
  - EYE IRRITATION [None]
  - GAIT DISTURBANCE [None]
  - INFLUENZA LIKE ILLNESS [None]
  - MUSCLE SPASMS [None]
  - MUSCLE TWITCHING [None]
  - PAIN [None]
  - THROAT IRRITATION [None]
  - VEIN PAIN [None]
